FAERS Safety Report 4475127-9 (Version None)
Quarter: 2004Q4

REPORT INFORMATION
  Report Type: 
  Country: None (occurrence: None)
  Receive Date: 20041013
  Receipt Date: 20041013
  Transmission Date: 20050328
  Serious: Yes (Hospitalization)
  Sender: FDA-Public Use
  Company Number: None

PATIENT
  Age: 49 Year
  Sex: Male

DRUGS (7)
  1. SEROQUEL [Suspect]
     Dosage: 900 MG   QHS   ORAL
     Route: 048
  2. KLONOPIN [Suspect]
     Dosage: 0.5MG  TID  ORAL
     Route: 048
  3. RISPERDAL [Concomitant]
  4. KLONOPIN [Concomitant]
  5. TRILEPTAL [Concomitant]
  6. SEROQUEL [Concomitant]
  7. DEPAKOTE [Concomitant]

REACTIONS (4)
  - DEPRESSED LEVEL OF CONSCIOUSNESS [None]
  - HYPERSOMNIA [None]
  - MENTAL STATUS CHANGES [None]
  - SOMNOLENCE [None]
